FAERS Safety Report 22154935 (Version 1)
Quarter: 2023Q1

REPORT INFORMATION
  Report Type: Other
  Country: GB (occurrence: GB)
  Receive Date: 20230330
  Receipt Date: 20230330
  Transmission Date: 20230417
  Serious: Yes (Hospitalization)
  Sender: FDA-Public Use
  Company Number: GB-MACLEODS PHARMA EU LTD-MAC2023040449

PATIENT

DRUGS (7)
  1. CLOPIDOGREL [Suspect]
     Active Substance: CLOPIDOGREL BISULFATE
     Indication: Product used for unknown indication
     Dosage: UNK
     Route: 065
  2. LANSOPRAZOLE [Concomitant]
     Active Substance: LANSOPRAZOLE
     Indication: Product used for unknown indication
     Dosage: 1 DOSAGE FORM, QD (GASTRO-RESISTANT CAPSULES ONE TO BE TAKEN EACH MORNING)
     Route: 065
  3. LEVETIRACETAM [Concomitant]
     Active Substance: LEVETIRACETAM
     Indication: Product used for unknown indication
     Dosage: 2 DOSAGE FORM, BID (TWO TABLETS TWICE DAILY: TAKES AT 8:00 AND 16:00)
     Route: 065
  4. LOPERAMIDE [Concomitant]
     Active Substance: LOPERAMIDE
     Indication: Prophylaxis against diarrhoea
     Dosage: UNK UNK, PRN (TAKE TWO TO FOUR TABLETS DAILY IN DIVIDED DOSES ACCORDING TO RESPONSE TO KEEP STOOLS F
     Route: 065
  5. ZOLPIDEM [Concomitant]
     Active Substance: ZOLPIDEM TARTRATE
     Indication: Product used for unknown indication
     Dosage: 1 DOSAGE FORM, PRN (ONE TO BE TAKEN AT NIGHT IF NEEDED)
     Route: 065
  6. CALCIUM CARBONATE\CHOLECALCIFEROL [Concomitant]
     Active Substance: CALCIUM CARBONATE\CHOLECALCIFEROL
     Indication: Product used for unknown indication
     Dosage: 2 DOSAGE FORM, BID ( 750MG/200UNIT CAPLETS TAKE TWO TWICE A DAY)
     Route: 065
  7. ZEROCREAM [Concomitant]
     Indication: Dry skin
     Dosage: UNK, QD (TO DRY SKIN AREAS TWO OR THREE TIMES DAILY AND RUB IN WELL THIS IS THE SAME AS E45 500 GRAM
     Route: 065

REACTIONS (1)
  - Haematemesis [Recovered/Resolved]
